FAERS Safety Report 5414211-X (Version None)
Quarter: 2007Q3

REPORT INFORMATION
  Report Type: 
  Country: None (occurrence: None)
  Receive Date: 20070731
  Receipt Date: 20070531
  Transmission Date: 20080115
  Serious: No
  Sender: FDA-Public Use
  Company Number: 2007PV028140

PATIENT
  Age: 49 Year
  Sex: Female
  Weight: 77.1 kg

DRUGS (8)
  1. EXENATIDE (EXENATIDE) PEN, DISPOSABLE [Suspect]
     Indication: GLUCOSE TOLERANCE IMPAIRED
     Dosage: 10 UG, 2/D, SUBCUTANEOUS, 5 UG, 2/D, SUBCUTANEOUS, 10 UG, 2/D, SUBCUTANEOUS, 10 UG, 2/D, SUBCUTANEOU
     Route: 058
     Dates: start: 20060901, end: 20061229
  2. EXENATIDE (EXENATIDE) PEN, DISPOSABLE [Suspect]
     Indication: GLUCOSE TOLERANCE IMPAIRED
     Dosage: 10 UG, 2/D, SUBCUTANEOUS, 5 UG, 2/D, SUBCUTANEOUS, 10 UG, 2/D, SUBCUTANEOUS, 10 UG, 2/D, SUBCUTANEOU
     Route: 058
     Dates: start: 20060101
  3. EXENATIDE (EXENATIDE) PEN, DISPOSABLE [Suspect]
     Indication: GLUCOSE TOLERANCE IMPAIRED
     Dosage: 10 UG, 2/D, SUBCUTANEOUS, 5 UG, 2/D, SUBCUTANEOUS, 10 UG, 2/D, SUBCUTANEOUS, 10 UG, 2/D, SUBCUTANEOU
     Route: 058
     Dates: start: 20061230
  4. EXENATIDE (EXENATIDE) PEN, DISPOSABLE [Suspect]
  5. EXENATIDE (EXENATIDE) PEN, DISPOSABLE [Suspect]
  6. METFORMIN HCL [Concomitant]
  7. METFORMIN HCL [Concomitant]
  8. EXENATIDE PEN [Concomitant]

REACTIONS (8)
  - DYSPEPSIA [None]
  - FATIGUE [None]
  - INJECTION SITE BRUISING [None]
  - INJECTION SITE PAIN [None]
  - NAUSEA [None]
  - SOMNOLENCE [None]
  - VOMITING [None]
  - WEIGHT DECREASED [None]
